FAERS Safety Report 4380556-8 (Version None)
Quarter: 2004Q2

REPORT INFORMATION
  Report Type: 
  Country: None (occurrence: None)
  Receive Date: 20040614
  Receipt Date: 20040225
  Transmission Date: 20050107
  Serious: Yes (Life-Threatening, Hospitalization)
  Sender: FDA-Public Use
  Company Number: M04-341-048

PATIENT
  Age: 60 Year
  Sex: Male

DRUGS (8)
  1. VELCADE [Suspect]
     Indication: MULTIPLE MYELOMA
     Dosage: 3.5 MG : INTRAVENOUS (NOT OTHERWISE SPECIFIED)
     Route: 042
  2. ACYCLOVIR [Concomitant]
  3. ALPRAZOLAM [Concomitant]
  4. CITALOPRAM HYDROBROMIDE [Concomitant]
  5. EPOETIN ALFA [Concomitant]
  6. MAGNESIUM [Concomitant]
  7. PANTOPRAZOLE [Concomitant]
  8. MULTIVITAMIN [Concomitant]

REACTIONS (3)
  - PULMONARY OEDEMA [None]
  - RESPIRATORY FAILURE [None]
  - SUPRAVENTRICULAR TACHYCARDIA [None]
